FAERS Safety Report 20262753 (Version 1)
Quarter: 2021Q4

REPORT INFORMATION
  Report Type: Report from Study
  Country: IT (occurrence: IT)
  Receive Date: 20211231
  Receipt Date: 20211231
  Transmission Date: 20220303
  Serious: Yes (Hospitalization)
  Sender: FDA-Public Use
  Company Number: None

PATIENT
  Age: 87 Year
  Sex: Female

DRUGS (6)
  1. PROPAFENONE [Suspect]
     Active Substance: PROPAFENONE
     Indication: COVID-19 immunisation
     Dosage: 3 DF
     Route: 048
     Dates: start: 20210101, end: 20211204
  2. VALSARTAN [Concomitant]
     Active Substance: VALSARTAN
  3. LYRICA [Concomitant]
     Active Substance: PREGABALIN
  4. SIMVASTATIN [Concomitant]
     Active Substance: SIMVASTATIN
     Dosage: 20 MG
  5. XANAX [Concomitant]
     Active Substance: ALPRAZOLAM
  6. PRADAXA [Concomitant]
     Active Substance: DABIGATRAN ETEXILATE MESYLATE

REACTIONS (2)
  - Bradycardia [Not Recovered/Not Resolved]
  - Sinus rhythm [Not Recovered/Not Resolved]

NARRATIVE: CASE EVENT DATE: 20211204
